FAERS Safety Report 4381729-0 (Version None)
Quarter: 2004Q2

REPORT INFORMATION
  Report Type: 
  Country: None (occurrence: None)
  Receive Date: 20040603
  Receipt Date: 20030724
  Transmission Date: 20050107
  Serious: Yes (Other)
  Sender: FDA-Public Use
  Company Number: 200316762US

PATIENT
  Age: 78 Year
  Sex: Female
  Weight: 63.6 kg

DRUGS (2)
  1. LOVENOX [Suspect]
     Indication: DEEP VEIN THROMBOSIS
     Dosage: 30 MG Q12H SC
     Route: 058
  2. WARFARIN SODIUM [Concomitant]

REACTIONS (1)
  - HAEMATOCRIT DECREASED [None]
